FAERS Safety Report 4406308-8 (Version None)
Quarter: 2004Q3

REPORT INFORMATION
  Report Type: 
  Country: None (occurrence: None)
  Receive Date: 20040723
  Receipt Date: 20030616
  Transmission Date: 20050211
  Serious: No
  Sender: FDA-Public Use
  Company Number: US-GLAXOSMITHKLINE-A0412479A

PATIENT
  Age: 29 Year
  Sex: Female

DRUGS (2)
  1. AVANDIA [Suspect]
     Indication: INSULIN RESISTANCE
     Dosage: 4MG TWICE PER DAY
     Route: 048
  2. CLOMID [Concomitant]
     Dosage: 100MG CYCLIC

REACTIONS (1)
  - PALPITATIONS [None]
